FAERS Safety Report 21840535 (Version 1)
Quarter: 2023Q1

REPORT INFORMATION
  Report Type: Report from Study
  Country: US (occurrence: US)
  Receive Date: 20230110
  Receipt Date: 20230110
  Transmission Date: 20230418
  Serious: No
  Sender: FDA-Public Use
  Company Number: US-ABBVIE-4261163

PATIENT
  Age: 54 Year
  Sex: Female

DRUGS (1)
  1. SKYRIZI [Suspect]
     Active Substance: RISANKIZUMAB-RZAA
     Indication: Psoriasis
     Route: 058
     Dates: start: 20221127

REACTIONS (4)
  - Feeling abnormal [Unknown]
  - Nausea [Unknown]
  - Abdominal distension [Unknown]
  - Discomfort [Unknown]

NARRATIVE: CASE EVENT DATE: 20221201
